FAERS Safety Report 16206700 (Version 1)
Quarter: 2019Q2

REPORT INFORMATION
  Report Type: Spontaneous
  Country: CH (occurrence: CH)
  Receive Date: 20190417
  Receipt Date: 20190417
  Transmission Date: 20190711
  Serious: Yes (Other)
  Sender: FDA-Public Use
  Company Number: CH-BAUSCH-BL-2019-010486

PATIENT
  Age: 68 Year
  Sex: Female

DRUGS (7)
  1. SECUKINUMAB. [Suspect]
     Active Substance: SECUKINUMAB
     Indication: MULTIPLE SCLEROSIS
     Route: 065
     Dates: start: 201512
  2. SOLU-MEDROL [Suspect]
     Active Substance: METHYLPREDNISOLONE SODIUM SUCCINATE
     Indication: MULTIPLE SCLEROSIS RELAPSE
     Dosage: HIGH DOSE
     Route: 065
     Dates: start: 201610
  3. SECUKINUMAB. [Suspect]
     Active Substance: SECUKINUMAB
     Indication: PSORIASIS
  4. PREDNISOLONE. [Suspect]
     Active Substance: PREDNISOLONE
     Dosage: DOSE: 2.5 MG TO 40 MG DAILY
     Route: 065
     Dates: start: 201607
  5. METHOTREXATE. [Suspect]
     Active Substance: METHOTREXATE
     Indication: PSORIASIS
     Route: 065
     Dates: start: 2015, end: 2015
  6. METHOTREXATE. [Suspect]
     Active Substance: METHOTREXATE
     Route: 065
     Dates: start: 2011, end: 2014
  7. PREDNISOLONE. [Suspect]
     Active Substance: PREDNISOLONE
     Indication: POLYMYALGIA RHEUMATICA
     Dosage: DOSE: 2.5 MG TO 40 MG DAILY
     Route: 065
     Dates: start: 201607

REACTIONS (2)
  - Fractured sacrum [Unknown]
  - Infection [Unknown]

NARRATIVE: CASE EVENT DATE: 201608
